FAERS Safety Report 17914452 (Version 2)
Quarter: 2020Q3

REPORT INFORMATION
  Report Type: Spontaneous
  Country: US (occurrence: US)
  Receive Date: 20200618
  Receipt Date: 20200917
  Transmission Date: 20201103
  Serious: No
  Sender: FDA-Public Use
  Company Number: US-ADAMAS PHARMA, LLC-2020ADA01104

PATIENT
  Sex: Male

DRUGS (3)
  1. GOCOVRI [Suspect]
     Active Substance: AMANTADINE
     Indication: DYSKINESIA
     Dosage: 1 CAPSULES, 1X/DAY AT BEDTIME (AS ^RECOMMENDED DOSING^)
     Route: 048
     Dates: start: 20180304
  2. GOCOVRI [Suspect]
     Active Substance: AMANTADINE
     Indication: PARKINSON^S DISEASE
     Dosage: UNK, 1X/DAY AT BEDTIME
     Route: 048
  3. UNSPECIFIED LEVODOPA?BASED THERAPY [Concomitant]
     Active Substance: LEVODOPA

REACTIONS (4)
  - Product dose omission issue [Recovered/Resolved]
  - Unevaluable event [Not Recovered/Not Resolved]
  - On and off phenomenon [Recovering/Resolving]
  - Dysphonia [Not Recovered/Not Resolved]
